FAERS Safety Report 4638650-X (Version None)
Quarter: 2005Q2

REPORT INFORMATION
  Report Type: 
  Country: None (occurrence: None)
  Receive Date: 20050414
  Receipt Date: 20050414
  Transmission Date: 20051028
  Serious: No
  Sender: FDA-Public Use
  Company Number: None

PATIENT
  Sex: Male
  Weight: 86 kg

DRUGS (2)
  1. STEM CELL TRANSPLANTATION TISSUE [Suspect]
     Indication: NON-HODGKIN'S LYMPHOMA
     Dates: start: 20030623
  2. METOPROLOL TARTRATE [Concomitant]

REACTIONS (2)
  - ORTHOSTATIC HYPOTENSION [None]
  - SYNCOPE [None]
